FAERS Safety Report 24609060 (Version 1)
Quarter: 2024Q4

REPORT INFORMATION
  Report Type: Spontaneous
  Country: ZA (occurrence: ZA)
  Receive Date: 20241112
  Receipt Date: 20241112
  Transmission Date: 20250114
  Serious: Yes (Hospitalization, Other)
  Sender: PFIZER
  Company Number: ZA-PFIZER INC-202400297600

PATIENT
  Age: 61 Year
  Sex: Female

DRUGS (3)
  1. METHOTREXATE SODIUM [Suspect]
     Active Substance: METHOTREXATE SODIUM
     Dosage: 20 MG, WEEKLY
     Dates: start: 201203, end: 202205
  2. CHLOROQUINE [Concomitant]
     Active Substance: CHLOROQUINE
     Dosage: 200 MG, 5X WEEK
     Dates: start: 201302
  3. LEFLUNOMIDE [Concomitant]
     Active Substance: LEFLUNOMIDE
     Dosage: 20 MG, DAILY
     Dates: start: 201506

REACTIONS (7)
  - Influenza [Unknown]
  - Transient ischaemic attack [Unknown]
  - Condition aggravated [Unknown]
  - Pneumonitis [Unknown]
  - Foot fracture [Unknown]
  - Chronic obstructive pulmonary disease [Unknown]
  - Infection [Unknown]

NARRATIVE: CASE EVENT DATE: 20141101
